FAERS Safety Report 10512770 (Version 2)
Quarter: 2014Q4

REPORT INFORMATION
  Report Type: Spontaneous
  Country: CA (occurrence: CA)
  Receive Date: 20141013
  Receipt Date: 20141208
  Transmission Date: 20150528
  Serious: Yes (Other)
  Sender: FDA-Public Use
  Company Number: CA-JNJFOC-20141003307

PATIENT
  Sex: Male

DRUGS (1)
  1. NICORETTE FRESH MINT [Suspect]
     Active Substance: NICOTINE
     Indication: NICOTINE DEPENDENCE
     Dosage: 105 PACK
     Route: 048
     Dates: start: 201209

REACTIONS (5)
  - Hypersensitivity [Unknown]
  - Incorrect drug administration duration [Unknown]
  - Product formulation issue [Unknown]
  - Blood pressure increased [Unknown]
  - Loss of consciousness [Unknown]
